FAERS Safety Report 6975323 (Version 2)
Quarter: 2013Q2

REPORT INFORMATION
  Report Type: Report from Study
  Country: KR (occurrence: KR)
  Receive Date: 20090422
  Receipt Date: 20130527
  Transmission Date: 20140414
  Serious: Yes (Death)
  Sender: FDA-Public Use
  Company Number: KR-PFIZER INC-2009198207

PATIENT
  Age: 55 Year
  Sex: Male
  Weight: 59 kg

DRUGS (2)
  1. VORICONAZOLE [Suspect]
     Indication: ASPERGILLUS INFECTION
     Dosage: 300 MG, 2X/DAY
     Route: 042
     Dates: start: 20080309, end: 20080312
  2. MIDAZOLAM [Concomitant]
     Indication: SEDATIVE THERAPY
     Dosage: UNK
     Route: 042
     Dates: start: 20080301, end: 20080312

REACTIONS (1)
  - Death [Fatal]
